FAERS Safety Report 9298287 (Version 2)
Quarter: 2013Q3

REPORT INFORMATION
  Report Type: Spontaneous
  Country: US (occurrence: None)
  Receive Date: 20121001
  Receipt Date: 20130815
  Transmission Date: 20140515
  Serious: Yes (Hospitalization, Other)
  Sender: FDA-Public Use
  Company Number: ADR-2012-01686

PATIENT
  Sex: Male

DRUGS (3)
  1. BACLOFEN INTRATHECAL [Suspect]
     Indication: MUSCLE SPASTICITY
  2. ORAL BACLOFEN [Concomitant]
  3. ORAL GABAPENTIN [Concomitant]

REACTIONS (5)
  - Vomiting [None]
  - Cerebrospinal fluid leakage [None]
  - Intracranial hypotension [None]
  - Hypertonia [None]
  - Implant site swelling [None]
